FAERS Safety Report 10051490 (Version 4)
Quarter: 2014Q3

REPORT INFORMATION
  Report Type: Report from Study
  Country: JP (occurrence: JP)
  Receive Date: 20140401
  Receipt Date: 20140818
  Transmission Date: 20150326
  Serious: Yes (Hospitalization)
  Sender: FDA-Public Use
  Company Number: JP-B.I. PHARMACEUTICALS,INC./RIDGEFIELD-2014-BI-13390NB

PATIENT
  Age: 72 Year
  Sex: Male
  Weight: 65 kg

DRUGS (9)
  1. LIPITOR [Concomitant]
     Active Substance: ATORVASTATIN CALCIUM
     Dosage: 5 MG
     Route: 048
  2. NITOROL [Concomitant]
     Active Substance: ISOSORBIDE DINITRATE
     Indication: PROPHYLAXIS
     Route: 060
     Dates: start: 20131023
  3. TAKEPRON [Concomitant]
     Active Substance: LANSOPRAZOLE
     Indication: PROPHYLAXIS
     Dosage: 30 MG
     Route: 048
  4. RENIVACE [Concomitant]
     Active Substance: ENALAPRIL
     Dosage: 5 MG
     Route: 048
  5. BAYASPIRIN [Concomitant]
     Active Substance: ASPIRIN
     Dosage: 100 MG
     Route: 048
  6. MYOCOR [Concomitant]
     Indication: PROPHYLAXIS
     Dosage: FORMULATION: SPRAY
     Route: 065
     Dates: start: 20131024
  7. TRAZENTA [Suspect]
     Active Substance: LINAGLIPTIN
     Indication: TYPE 2 DIABETES MELLITUS
     Dosage: 5 MG
     Route: 048
     Dates: start: 20130920
  8. MAINTATE [Concomitant]
     Active Substance: BISOPROLOL FUMARATE
     Dosage: 5 MG
     Route: 048
  9. ATELEC [Concomitant]
     Active Substance: CILNIDIPINE
     Dosage: 10 MG
     Route: 048

REACTIONS (1)
  - Angina pectoris [Recovered/Resolved]

NARRATIVE: CASE EVENT DATE: 20131123
